FAERS Safety Report 9559188 (Version 2)
Quarter: 2013Q4

REPORT INFORMATION
  Report Type: Other
  Country: US (occurrence: US)
  Receive Date: 20130927
  Receipt Date: 20131125
  Transmission Date: 20140711
  Serious: Yes (Hospitalization)
  Sender: FDA-Public Use
  Company Number: US-SHIRE-ALL1-2013-06355

PATIENT
  Age: 69 Year
  Sex: Female
  Weight: 89.8 kg

DRUGS (14)
  1. PENTASA [Suspect]
     Indication: CROHN^S DISEASE
     Dosage: 1000 MG,(TWO 500 MG CAPSULES) 4X/DAY:QID
     Route: 048
  2. PENTASA [Suspect]
     Dosage: UNK, 3X/DAY:TID
     Route: 048
  3. VITAMIN D                          /00107901/ [Concomitant]
     Indication: PRODUCT USED FOR UNKNOWN INDICATION
     Dosage: 1000 MG, 1X/DAY:QD
     Route: 048
  4. ASPIRIN [Concomitant]
     Indication: CARDIAC DISORDER
     Dosage: 81 MG, 1X/DAY:QD
     Route: 048
  5. RESTORIL                           /00054301/ [Concomitant]
     Indication: SLEEP DISORDER
     Dosage: 30 MG, 1X/DAY:QD
     Route: 048
  6. CENTRUM SILVER                     /02363801/ [Concomitant]
     Indication: ROUTINE HEALTH MAINTENANCE
     Dosage: 1 DF, 1X/DAY:QD
     Route: 048
  7. ALLERGY MEDICATION [Concomitant]
     Indication: SEASONAL ALLERGY
     Dosage: UNK, 1X/DAY:QD
     Route: 048
  8. LORATADINE [Concomitant]
     Indication: PRODUCT USED FOR UNKNOWN INDICATION
     Dosage: 10 MG, 1X/DAY:QD
     Route: 048
  9. PHENERGAN                          /00033001/ [Concomitant]
     Indication: NAUSEA
     Dosage: 25 MG, 1X/DAY:QD
     Route: 048
  10. LOMOTIL                            /00034001/ [Concomitant]
     Indication: DIARRHOEA
     Dosage: 2.5 MG, AS REQ^D
     Route: 048
  11. PAXIL                              /00500401/ [Concomitant]
     Indication: DEPRESSION
     Dosage: UNK, 1X/DAY:QD
     Route: 048
  12. CLONAZEPAM [Concomitant]
     Indication: ANXIETY
     Dosage: 1 MG, 1X/DAY:QD (AT 5 PM)
     Route: 048
  13. CLONAZEPAM [Concomitant]
     Dosage: 0.5 MG, 1X/DAY:QD (IN THE AM)
     Route: 048
  14. LOVAZA [Concomitant]
     Indication: PRODUCT USED FOR UNKNOWN INDICATION
     Dosage: UNK, 1X/DAY:QD
     Route: 048

REACTIONS (7)
  - Diabetes mellitus [Not Recovered/Not Resolved]
  - Back pain [Not Recovered/Not Resolved]
  - Compulsions [Recovered/Resolved]
  - Blood glucose increased [Recovered/Resolved]
  - Nausea [Not Recovered/Not Resolved]
  - Off label use [Not Recovered/Not Resolved]
  - Inappropriate schedule of drug administration [Not Recovered/Not Resolved]
